FAERS Safety Report 13515509 (Version 1)
Quarter: 2017Q2

REPORT INFORMATION
  Report Type: Spontaneous
  Country: US (occurrence: US)
  Receive Date: 20170504
  Receipt Date: 20170504
  Transmission Date: 20170830
  Serious: Yes (Hospitalization, Other)
  Sender: FDA-Public Use
  Company Number: US-TEIKOKU PHARMA USA-TPU2017-00277

PATIENT
  Age: 74 Year
  Weight: 63.11 kg

DRUGS (8)
  1. LIDOCAINE PATCH [Suspect]
     Active Substance: LIDOCAINE
     Indication: NECK PAIN
     Dosage: APPLY A MAXIMUM OF 3 PATCHES A DAY FOR 12 HOURS ON AND 12 HOURS OFF, USUALLY PUTS THEM ON AT 7 OR 8:
     Route: 061
  2. LIDOCAINE PATCH [Suspect]
     Active Substance: LIDOCAINE
     Indication: MUSCULOSKELETAL PAIN
  3. UNK [Concomitant]
     Active Substance: UNSPECIFIED INGREDIENT
     Dosage: ONE PUFF IN THE MORNING
  4. UNK BREATHING TREATMENT [Concomitant]
     Route: 003
  5. LORAZEPAM. [Concomitant]
     Active Substance: LORAZEPAM
  6. OXYCODONE [Concomitant]
     Active Substance: OXYCODONE
  7. LIDOCAINE PATCH [Suspect]
     Active Substance: LIDOCAINE
     Indication: PAIN IN EXTREMITY
  8. LIDOCAINE PATCH [Suspect]
     Active Substance: LIDOCAINE
     Indication: BACK PAIN

REACTIONS (4)
  - Hip fracture [Not Recovered/Not Resolved]
  - Fall [Unknown]
  - Pain in extremity [Not Recovered/Not Resolved]
  - Hip surgery [Unknown]

NARRATIVE: CASE EVENT DATE: 20161208
